FAERS Safety Report 9958846 (Version 1)
Quarter: 2014Q1

REPORT INFORMATION
  Report Type: Spontaneous
  Country: US (occurrence: None)
  Receive Date: 20140228
  Receipt Date: 20140228
  Transmission Date: 20141002
  Serious: Yes (Other)
  Sender: FDA-Public Use
  Company Number: None

PATIENT
  Age: 39 Year
  Sex: Female

DRUGS (1)
  1. LOSARTAN [Suspect]
     Indication: HYPERTENSION
     Route: 048
     Dates: start: 20131023, end: 20140128

REACTIONS (8)
  - Muscular weakness [None]
  - Muscular weakness [None]
  - Muscle spasms [None]
  - Dizziness [None]
  - Anxiety [None]
  - Muscle tightness [None]
  - Constipation [None]
  - Unevaluable event [None]
